FAERS Safety Report 5745098-3 (Version None)
Quarter: 2008Q2

REPORT INFORMATION
  Report Type: 
  Country: None (occurrence: None)
  Receive Date: 20080521
  Receipt Date: 20080520
  Transmission Date: 20081010
  Serious: Yes (Hospitalization)
  Sender: FDA-Public Use
  Company Number: AT-BRISTOL-MYERS SQUIBB COMPANY-14147342

PATIENT
  Age: 58 Year
  Sex: Female

DRUGS (3)
  1. ABILIFY [Suspect]
     Indication: SCHIZOPHRENIA, PARANOID TYPE
     Dosage: INTERRUPTED IN APR2008 + RESTARTED WITH 10 MG.
     Route: 048
     Dates: start: 20070701
  2. CLOZAPINE [Concomitant]
     Route: 048
  3. INDERAL [Concomitant]
     Dosage: 2X10MG
     Route: 048

REACTIONS (2)
  - ACUTE PSYCHOSIS [None]
  - HYPONATRAEMIA [None]
